FAERS Safety Report 5230821-7 (Version None)
Quarter: 2007Q1

REPORT INFORMATION
  Report Type: 
  Country: None (occurrence: None)
  Receive Date: 20070205
  Receipt Date: 20070205
  Transmission Date: 20070707
  Serious: Yes (Death, Hospitalization)
  Sender: FDA-Public Use
  Company Number: None

PATIENT
  Age: 42 Day
  Sex: Female
  Weight: 3.8 kg

DRUGS (2)
  1. DIGOXIN [Suspect]
     Indication: MULTIPLE CARDIAC DEFECTS
     Dosage: 0.11 ML  -5.5 MCG-  TWICE DAILY   PO
     Route: 048
     Dates: start: 20070101, end: 20070117
  2. FUROSEMIDE [Suspect]
     Indication: MULTIPLE CARDIAC DEFECTS
     Dosage: UNCERTAIN  DAILY   PO
     Route: 048
     Dates: start: 20070101, end: 20070117

REACTIONS (4)
  - CARDIAC ARREST [None]
  - MEDICATION ERROR [None]
  - MULTI-ORGAN FAILURE [None]
  - OVERDOSE [None]
